FAERS Safety Report 15202993 (Version 2)
Quarter: 2018Q4

REPORT INFORMATION
  Report Type: Report from Study
  Country: FR (occurrence: FR)
  Receive Date: 20180726
  Receipt Date: 20181010
  Transmission Date: 20190204
  Serious: Yes (Life-Threatening)
  Sender: FDA-Public Use
  Company Number: FR-SA-2018SA162336

PATIENT
  Weight: 82 kg

DRUGS (4)
  1. LAMALINE (ATROPA BELLADONNA EXTRACT\CAFFEINE\PAPAVER SOMNIFERUM TINCTURE\PARACETAMOL) [Concomitant]
     Active Substance: ACETAMINOPHEN\BELLADONNA LEAF\CAFFEINE\OPIUM
     Dosage: 300 MG, QD
     Route: 048
     Dates: start: 201804
  2. SPECIAFOLDINE [Concomitant]
     Active Substance: FOLIC ACID
     Dosage: 5 MG, UNK
     Route: 048
     Dates: start: 201508
  3. SARILUMAB [Suspect]
     Active Substance: SARILUMAB
     Dosage: UNK
     Dates: start: 20180322
  4. MTX [METHOTREXATE] [Concomitant]
     Dosage: 20 MG, QD
     Dates: start: 201708

REACTIONS (1)
  - Hypersensitivity [Recovered/Resolved]

NARRATIVE: CASE EVENT DATE: 20180610
